FAERS Safety Report 10752080 (Version 2)
Quarter: 2015Q1

REPORT INFORMATION
  Report Type: Spontaneous
  Country: CL (occurrence: None)
  Receive Date: 20150128
  Receipt Date: 20150209
  Transmission Date: 20150721
  Serious: Yes (Hospitalization, Other)
  Sender: FDA-Public Use
  Company Number: CL2014GSK040133

PATIENT
  Sex: Male

DRUGS (3)
  1. COTRIMOXAZOL (SULFAMETHOXAZOLE + TRIMETHOPRIM) [Concomitant]
  2. TRUVADA [Concomitant]
     Active Substance: EMTRICITABINE\TENOFOVIR DISOPROXIL FUMARATE
  3. TIVICAY [Suspect]
     Active Substance: DOLUTEGRAVIR SODIUM
     Indication: HIV INFECTION
     Dates: start: 2014

REACTIONS (3)
  - Anal ulcer [None]
  - Neutropenia [None]
  - Gingivitis ulcerative [None]

NARRATIVE: CASE EVENT DATE: 2014
